FAERS Safety Report 9337578 (Version 1)
Quarter: 2013Q2

REPORT INFORMATION
  Report Type: Spontaneous
  Country: US (occurrence: US)
  Receive Date: 20130607
  Receipt Date: 20130607
  Transmission Date: 20140414
  Serious: No
  Sender: FDA-Public Use
  Company Number: US-009507513-1306USA001224

PATIENT
  Sex: Female

DRUGS (1)
  1. HYZAAR [Suspect]
     Route: 048

REACTIONS (3)
  - Joint swelling [Unknown]
  - Local swelling [Unknown]
  - Headache [Unknown]
